FAERS Safety Report 16002095 (Version 1)
Quarter: 2019Q1

REPORT INFORMATION
  Report Type: Spontaneous
  Country: GB (occurrence: GB)
  Receive Date: 20190225
  Receipt Date: 20190225
  Transmission Date: 20190418
  Serious: Yes (Hospitalization)
  Sender: FDA-Public Use
  Company Number: GB-BIOGEN-2019BI00701342

PATIENT
  Sex: Female

DRUGS (3)
  1. NUSINERSEN [Suspect]
     Active Substance: NUSINERSEN
     Dosage: FOURTH INJECTION ONE MONTH LATER
     Route: 037
  2. NUSINERSEN [Suspect]
     Active Substance: NUSINERSEN
     Route: 037
  3. NUSINERSEN [Suspect]
     Active Substance: NUSINERSEN
     Indication: SPINAL MUSCULAR ATROPHY
     Dosage: THREE INJECTIONS CARRIED OUT 15 DAYS APART
     Route: 037

REACTIONS (6)
  - Respiratory syncytial virus infection [Unknown]
  - Dyspnoea [Unknown]
  - Respiratory failure [Unknown]
  - Oxygen saturation decreased [Unknown]
  - Dysphagia [Unknown]
  - Off label use [Unknown]
